FAERS Safety Report 7070968-6 (Version None)
Quarter: 2010Q4

REPORT INFORMATION
  Report Type: 
  Country: None (occurrence: None)
  Receive Date: 20101029
  Receipt Date: 20101026
  Transmission Date: 20110411
  Serious: Yes (Hospitalization, Other)
  Sender: FDA-Public Use
  Company Number: US-WYE-H16479510

PATIENT
  Sex: Male
  Weight: 72.64 kg

DRUGS (3)
  1. EFFEXOR XR [Suspect]
     Indication: DEPRESSION
     Dosage: UNKNOWN DAILY DOSE
     Route: 048
     Dates: start: 20000101
  2. EFFEXOR XR [Suspect]
     Route: 048
  3. CYMBALTA [Suspect]
     Indication: DEPRESSION
     Dosage: UNKNOWN

REACTIONS (8)
  - CEREBROVASCULAR ACCIDENT [None]
  - COGNITIVE DISORDER [None]
  - DRUG EFFECT DECREASED [None]
  - DRUG WITHDRAWAL SYNDROME [None]
  - FATIGUE [None]
  - IMPAIRED DRIVING ABILITY [None]
  - MALAISE [None]
  - NEUROLOGICAL EXAMINATION ABNORMAL [None]
